FAERS Safety Report 6666434-X (Version None)
Quarter: 2010Q2

REPORT INFORMATION
  Report Type: 
  Country: None (occurrence: None)
  Receive Date: 20100402
  Receipt Date: 20100324
  Transmission Date: 20101027
  Serious: Yes (Life-Threatening)
  Sender: FDA-Public Use
  Company Number: IT-ABBOTT-10P-083-0634081-00

PATIENT
  Sex: Female

DRUGS (4)
  1. REDUCTIL 10MG [Suspect]
     Indication: OBESITY
     Dosage: 10 MG DAILY DOSE
     Route: 048
     Dates: start: 20100201, end: 20100321
  2. MILK FERMENTS [Concomitant]
     Indication: DRUG USE FOR UNKNOWN INDICATION
  3. FOOD SUPPLEMENT (VADESSA) [Concomitant]
     Indication: DRUG USE FOR UNKNOWN INDICATION
  4. LAXATIVE [Concomitant]
     Indication: DRUG USE FOR UNKNOWN INDICATION

REACTIONS (4)
  - CARDIAC ARREST [None]
  - ELECTROCARDIOGRAM QT PROLONGED [None]
  - HYPOKALAEMIA [None]
  - VENTRICULAR FIBRILLATION [None]
